FAERS Safety Report 8937102 (Version 1)
Quarter: 2012Q4

REPORT INFORMATION
  Report Type: Spontaneous
  Country: US (occurrence: None)
  Receive Date: 20121128
  Receipt Date: 20121128
  Transmission Date: 20130627
  Serious: Yes (Hospitalization, Other)
  Sender: FDA-Public Use
  Company Number: None

PATIENT
  Age: 41 Year
  Sex: Female
  Weight: 51.71 kg

DRUGS (1)
  1. THYROID, PORCINE [Suspect]
     Indication: HYPOTHYROIDISM
     Dosage: 1 pill  daily  po
     Route: 048
     Dates: start: 20090601, end: 20120824

REACTIONS (5)
  - Muscular weakness [None]
  - Myalgia [None]
  - Paralysis [None]
  - Viral infection [None]
  - Myopathy endocrine [None]
